FAERS Safety Report 25663536 (Version 1)
Quarter: 2025Q3

REPORT INFORMATION
  Report Type: Spontaneous
  Country: EU (occurrence: EU)
  Receive Date: 20250811
  Receipt Date: 20250811
  Transmission Date: 20251021
  Serious: Yes (Hospitalization, Other)
  Sender: TAKEDA
  Company Number: EU-JNJFOC-20250805128

PATIENT
  Age: 13 Year
  Sex: Male

DRUGS (1)
  1. BORTEZOMIB [Suspect]
     Active Substance: BORTEZOMIB
     Indication: Lymphocytic leukaemia

REACTIONS (3)
  - Bronchopulmonary aspergillosis [Unknown]
  - Sepsis [Unknown]
  - Oral candidiasis [Unknown]
